FAERS Safety Report 23152150 (Version 18)
Quarter: 2024Q3

REPORT INFORMATION
  Report Type: Report from Study
  Country: JP (occurrence: JP)
  Receive Date: 20231107
  Receipt Date: 20240927
  Transmission Date: 20241016
  Serious: Yes (Other)
  Sender: TAKEDA
  Company Number: JP-TAKEDA-2023TJP012923

PATIENT
  Sex: Female

DRUGS (5)
  1. ICATIBANT [Suspect]
     Active Substance: ICATIBANT ACETATE
     Indication: Hereditary angioedema
     Dosage: 30 MILLIGRAM
     Route: 058
     Dates: start: 20230925
  2. ICATIBANT [Suspect]
     Active Substance: ICATIBANT ACETATE
     Indication: Hereditary angioedema
     Dosage: 30 MILLIGRAM
     Route: 058
     Dates: start: 20230925
  3. BERINERT P [Concomitant]
     Active Substance: HUMAN C1-ESTERASE INHIBITOR
     Indication: Hereditary angioedema
     Dosage: UNK
     Route: 065
     Dates: start: 2023
  4. BERINERT P [Concomitant]
     Active Substance: HUMAN C1-ESTERASE INHIBITOR
     Dosage: UNK
     Route: 065
     Dates: start: 20231017, end: 20231017
  5. BERINERT P [Concomitant]
     Active Substance: HUMAN C1-ESTERASE INHIBITOR
     Dosage: UNK UNK, 2/WEEK
     Route: 065
     Dates: start: 2023

REACTIONS (25)
  - Internal haemorrhage [Unknown]
  - Glaucoma [Unknown]
  - Weight decreased [Unknown]
  - Rhinorrhoea [Unknown]
  - Vaccination site bruising [Unknown]
  - Anaemia [Unknown]
  - Dental caries [Unknown]
  - Lipoma [Unknown]
  - Malaise [Unknown]
  - Haemangioma [Unknown]
  - Hepatic steatosis [Unknown]
  - Oropharyngeal discomfort [Recovering/Resolving]
  - Coronavirus infection [Unknown]
  - Oropharyngeal pain [Not Recovered/Not Resolved]
  - Pharyngeal paraesthesia [Unknown]
  - Depression [Unknown]
  - Headache [Unknown]
  - Injection site haemorrhage [Unknown]
  - Headache [Unknown]
  - Eczema [Unknown]
  - Urticaria [Unknown]
  - Pyrexia [Recovering/Resolving]
  - Product administered at inappropriate site [Unknown]
  - Drug ineffective [Unknown]
  - Product storage error [Unknown]

NARRATIVE: CASE EVENT DATE: 20230101
